FAERS Safety Report 15916188 (Version 4)
Quarter: 2019Q1

REPORT INFORMATION
  Report Type: Spontaneous
  Country: JP (occurrence: JP)
  Receive Date: 20190204
  Receipt Date: 20190329
  Transmission Date: 20190417
  Serious: Yes (Life-Threatening, Hospitalization)
  Sender: FDA-Public Use
  Company Number: GXJP2019JP000518

PATIENT
  Age: 52 Year
  Sex: Female
  Weight: 65.8 kg

DRUGS (5)
  1. METFORMIN [Concomitant]
     Active Substance: METFORMIN HYDROCHLORIDE
     Indication: DIABETES MELLITUS MANAGEMENT
  2. XYZAL [Concomitant]
     Active Substance: LEVOCETIRIZINE DIHYDROCHLORIDE
     Indication: HYPERSENSITIVITY
     Dosage: 5 MG, QD
     Route: 048
     Dates: end: 20180924
  3. VALSARTAN TAB [Suspect]
     Active Substance: VALSARTAN
     Indication: HYPERTENSION
     Dosage: 40 MG, QD
     Route: 048
     Dates: start: 20160401, end: 20160406
  4. VALSARTAN TAB [Suspect]
     Active Substance: VALSARTAN
     Indication: BLOOD PRESSURE MANAGEMENT
  5. METFORMIN [Concomitant]
     Active Substance: METFORMIN HYDROCHLORIDE
     Indication: DIABETES MELLITUS
     Dosage: 250 MG, BID
     Route: 048
     Dates: start: 20160401, end: 20160406

REACTIONS (17)
  - Hyperglycaemia [Recovered/Resolved]
  - Blood corticotrophin abnormal [Unknown]
  - Blood pressure increased [Recovered/Resolved]
  - Phaeochromocytoma [Recovered/Resolved]
  - Hyperhidrosis [Unknown]
  - Pyrexia [Recovered/Resolved]
  - Blood cholesterol increased [Unknown]
  - Cortisol increased [Unknown]
  - Shock [Unknown]
  - Tachycardia [Recovered/Resolved]
  - Headache [Recovered/Resolved]
  - Tumour haemorrhage [Unknown]
  - Blood catecholamines increased [Recovered/Resolved]
  - Palpitations [Recovered/Resolved]
  - Inflammation [Recovering/Resolving]
  - Flank pain [Recovered/Resolved]
  - Catecholamines urine increased [Recovering/Resolving]

NARRATIVE: CASE EVENT DATE: 20160402
